FAERS Safety Report 7987762-1 (Version None)
Quarter: 2011Q4

REPORT INFORMATION
  Report Type: 
  Country: None (occurrence: None)
  Receive Date: 20111216
  Receipt Date: 20101103
  Transmission Date: 20120403
  Serious: Yes (Other)
  Sender: FDA-Public Use
  Company Number: US-BRISTOL-MYERS SQUIBB COMPANY-15366669

PATIENT
  Age: 8 Year
  Sex: Female

DRUGS (3)
  1. TENEX [Concomitant]
  2. ABILIFY [Suspect]
     Dosage: 1DF=1 DOSE OF ABILIFY 2MG
  3. VYVANSE [Concomitant]

REACTIONS (1)
  - GRAND MAL CONVULSION [None]
